FAERS Safety Report 6446100-6 (Version None)
Quarter: 2009Q4

REPORT INFORMATION
  Report Type: 
  Country: None (occurrence: None)
  Receive Date: 20091119
  Receipt Date: 20091110
  Transmission Date: 20100525
  Serious: Yes (Other)
  Sender: FDA-Public Use
  Company Number: FR-JNJFOC-20091103792

PATIENT
  Age: 85 Year
  Sex: Male

DRUGS (3)
  1. DURAGESIC-100 [Suspect]
     Route: 062
  2. DURAGESIC-100 [Suspect]
     Indication: DRUG USE FOR UNKNOWN INDICATION
     Route: 062
  3. BENEMIDE [Interacting]
     Indication: GOUT
     Route: 065

REACTIONS (3)
  - APNOEA [None]
  - DRUG INTERACTION [None]
  - MIOSIS [None]
